FAERS Safety Report 9934579 (Version 1)
Quarter: 2014Q1

REPORT INFORMATION
  Report Type: Report from Study
  Country: US (occurrence: US)
  Receive Date: 20140228
  Receipt Date: 20140228
  Transmission Date: 20141002
  Serious: Yes (Other)
  Sender: FDA-Public Use
  Company Number: US-ABBVIE-14P-163-1204700-00

PATIENT
  Age: 31 Year
  Sex: Female

DRUGS (9)
  1. HUMIRA [Suspect]
     Indication: PSORIATIC ARTHROPATHY
     Dates: end: 20140109
  2. HUMIRA [Suspect]
     Dates: start: 20140110, end: 20140110
  3. HUMIRA [Suspect]
     Dates: start: 20140124, end: 20140124
  4. TRAMADOL [Concomitant]
     Indication: ARTHRALGIA
  5. CYMBALTA [Concomitant]
     Indication: MIGRAINE
  6. CYMBALTA [Concomitant]
     Indication: DEPRESSION
  7. ESTRADIOL [Concomitant]
     Indication: OESTROGEN REPLACEMENT THERAPY
     Dosage: EVERY MORNING
  8. METOCARBAMOL [Concomitant]
     Indication: MUSCLE SPASMS
  9. METOCARBAMOL [Concomitant]
     Indication: CROHN^S DISEASE

REACTIONS (7)
  - Blindness [Not Recovered/Not Resolved]
  - Crohn^s disease [Not Recovered/Not Resolved]
  - Visual impairment [Not Recovered/Not Resolved]
  - Myopia [Recovering/Resolving]
  - Gastrointestinal disorder [Not Recovered/Not Resolved]
  - Abdominal pain [Not Recovered/Not Resolved]
  - Drug effect incomplete [Not Recovered/Not Resolved]
